FAERS Safety Report 9603395 (Version 1)
Quarter: 2013Q4

REPORT INFORMATION
  Report Type: Spontaneous
  Country: US (occurrence: US)
  Receive Date: 20131007
  Receipt Date: 20131007
  Transmission Date: 20140711
  Serious: Yes (Other)
  Sender: FDA-Public Use
  Company Number: US-ELI_LILLY_AND_COMPANY-US201309009215

PATIENT
  Sex: Female

DRUGS (3)
  1. HUMULIN NPH [Suspect]
     Indication: TYPE 2 DIABETES MELLITUS
     Dosage: 24 U, UNKNOWN
  2. HUMULIN NPH [Suspect]
     Dosage: 3 U, UNKNOWN
  3. HUMALOG LISPRO [Suspect]
     Indication: TYPE 2 DIABETES MELLITUS
     Dosage: UNK

REACTIONS (3)
  - Renal disorder [Unknown]
  - Blood glucose increased [Unknown]
  - Underdose [Unknown]
